FAERS Safety Report 10428477 (Version 2)
Quarter: 2014Q3

REPORT INFORMATION
  Report Type: Spontaneous
  Country: US (occurrence: US)
  Receive Date: 20140903
  Receipt Date: 20140926
  Transmission Date: 20150326
  Serious: Yes (Other)
  Sender: FDA-Public Use
  Company Number: US-ASTRAZENECA-2014SE64691

PATIENT
  Age: 67 Year
  Sex: Male
  Weight: 80.7 kg

DRUGS (24)
  1. SYMBICORT [Suspect]
     Active Substance: BUDESONIDE\FORMOTEROL FUMARATE DIHYDRATE
     Indication: CHRONIC OBSTRUCTIVE PULMONARY DISEASE
     Dosage: 160/4.5 ONE PUFF TWICE DAILY
     Route: 055
     Dates: start: 2013
  2. SYMBICORT [Suspect]
     Active Substance: BUDESONIDE\FORMOTEROL FUMARATE DIHYDRATE
     Indication: ASTHMA
     Dosage: 160/4.5 ONE PUFF TWICE DAILY
     Route: 055
     Dates: start: 2013
  3. LINAGLIPTIN [Concomitant]
     Active Substance: LINAGLIPTIN
     Indication: TYPE 2 DIABETES MELLITUS
     Dosage: 5 MG DAILY STARTED IN 2008 OR 2009
     Route: 050
  4. GABAPENTIN. [Concomitant]
     Active Substance: GABAPENTIN
     Indication: NEURALGIA
     Route: 048
     Dates: start: 2011
  5. SYMBICORT [Suspect]
     Active Substance: BUDESONIDE\FORMOTEROL FUMARATE DIHYDRATE
     Indication: EMPHYSEMA
     Dosage: 160/4.5 ONE PUFF TWICE DAILY
     Route: 055
     Dates: start: 2013
  6. POTASSIUM CHLORIDE. [Concomitant]
     Active Substance: POTASSIUM CHLORIDE
     Indication: MINERAL SUPPLEMENTATION
     Route: 048
     Dates: start: 2007
  7. COQ10 COENZYME [Concomitant]
     Indication: ARTHROPATHY
     Route: 048
     Dates: start: 2009
  8. CENTRUM SILVER [Concomitant]
     Active Substance: VITAMINS
     Dosage: ONE A DAY DAILY
     Route: 048
     Dates: start: 2013
  9. DILTIAZEM [Concomitant]
     Active Substance: DILTIAZEM
     Indication: CARDIAC DISORDER
     Route: 048
     Dates: start: 201312
  10. FUROSEMIDE. [Concomitant]
     Active Substance: FUROSEMIDE
     Indication: DIURETIC THERAPY
     Dosage: 1 TO 2 DAILY
     Route: 048
     Dates: start: 2007
  11. HYPROMELLOSE [Concomitant]
     Active Substance: HYPROMELLOSES
     Indication: DRY EYE
     Dosage: 1 DROP EACH EYE QID
     Route: 050
     Dates: start: 2010
  12. LANTUS [Concomitant]
     Active Substance: INSULIN GLARGINE
     Indication: TYPE 2 DIABETES MELLITUS
     Route: 048
     Dates: start: 2010
  13. GARLIC. [Concomitant]
     Active Substance: GARLIC
     Indication: HYPERTENSION
     Dosage: UNKNOWN UNK
     Route: 048
  14. DILTIAZEM [Concomitant]
     Active Substance: DILTIAZEM
     Indication: CARDIAC DISORDER
     Route: 048
     Dates: start: 2010, end: 201312
  15. LOVASTATIN. [Concomitant]
     Active Substance: LOVASTATIN
     Indication: BLOOD CHOLESTEROL INCREASED
     Route: 048
     Dates: start: 2008
  16. FISH OIL [Concomitant]
     Active Substance: FISH OIL
     Indication: ANGIOPATHY
     Route: 048
     Dates: start: 2007
  17. WARFARIN [Concomitant]
     Active Substance: WARFARIN
     Indication: CEREBROVASCULAR ACCIDENT PROPHYLAXIS
     Dosage: 7.5 MG (ONE AND A HALF TABS)EVERY DAY OF THE WEEK EXCEPT FOR TUESDAY WHERE HE ONLY TAKES 5 MG.
     Dates: start: 2007
  18. FLUNISOLIDE. [Concomitant]
     Active Substance: FLUNISOLIDE
     Indication: MULTIPLE ALLERGIES
     Dosage: 0.025% UNK
     Route: 045
  19. CLONAZEPAM. [Concomitant]
     Active Substance: CLONAZEPAM
     Indication: ANXIETY
     Route: 048
     Dates: start: 2006
  20. EZETIMIBE. [Concomitant]
     Active Substance: EZETIMIBE
     Route: 048
     Dates: start: 201403
  21. FLUOXETINE HCL [Concomitant]
     Active Substance: FLUOXETINE HYDROCHLORIDE
     Indication: ANXIETY
     Dosage: 2 DF DAILY STARTED IN 2004 OR 2005
     Route: 048
  22. BABY ASPIRIN [Concomitant]
     Active Substance: ASPIRIN
     Indication: CARDIOVASCULAR DISORDER
     Route: 048
     Dates: start: 2007
  23. TAMSULOSIN [Concomitant]
     Active Substance: TAMSULOSIN
     Route: 048
  24. WARFARIN [Concomitant]
     Active Substance: WARFARIN
     Indication: INTERNATIONAL NORMALISED RATIO
     Dosage: 7.5 MG (ONE AND A HALF TABS)EVERY DAY OF THE WEEK EXCEPT FOR TUESDAY WHERE HE ONLY TAKES 5 MG.
     Dates: start: 2007

REACTIONS (9)
  - Musculoskeletal stiffness [Unknown]
  - Cognitive disorder [Unknown]
  - Fall [Unknown]
  - Head injury [Unknown]
  - Eye movement disorder [Unknown]
  - Drug dose omission [Unknown]
  - Loss of consciousness [Unknown]
  - Intentional product misuse [Unknown]
  - Concussion [Unknown]

NARRATIVE: CASE EVENT DATE: 2013
